FAERS Safety Report 5287015-9 (Version None)
Quarter: 2007Q2

REPORT INFORMATION
  Report Type: 
  Country: None (occurrence: None)
  Receive Date: 20070404
  Receipt Date: 20070320
  Transmission Date: 20071010
  Serious: Yes (Hospitalization)
  Sender: FDA-Public Use
  Company Number: JP-PFIZER INC-2007009947

PATIENT
  Age: 65 Year
  Sex: Male

DRUGS (7)
  1. MIGLITOL [Suspect]
     Indication: DIABETES MELLITUS
     Dosage: DAILY DOSE:225MG
     Route: 048
     Dates: start: 20070119, end: 20070120
  2. WARFARIN POTASSIUM [Concomitant]
     Route: 048
  3. DIGOXIN [Concomitant]
     Route: 048
  4. MAINTATE [Concomitant]
     Route: 048
  5. PARAMIDIN [Concomitant]
     Route: 048
  6. LIPITOR [Concomitant]
     Route: 048
  7. BASEN [Concomitant]
     Route: 048

REACTIONS (4)
  - ABDOMINAL DISTENSION [None]
  - DIARRHOEA [None]
  - HAEMATOCHEZIA [None]
  - INTESTINAL ISCHAEMIA [None]
